FAERS Safety Report 6599021-2 (Version None)
Quarter: 2010Q1

REPORT INFORMATION
  Report Type: 
  Country: None (occurrence: None)
  Receive Date: 20100224
  Receipt Date: 20090626
  Transmission Date: 20100710
  Serious: No
  Sender: FDA-Public Use
  Company Number: US-BRISTOL-MYERS SQUIBB COMPANY-14681597

PATIENT
  Age: 41 Year
  Sex: Male
  Weight: 74 kg

DRUGS (1)
  1. METFORMIN HCL [Suspect]
     Indication: DIABETES MELLITUS
     Dosage: TOOK ADDITIONAL 500MG TAB ON 26JUN09
     Dates: start: 20090606

REACTIONS (1)
  - BLOOD GLUCOSE INCREASED [None]
